FAERS Safety Report 11935867 (Version 2)
Quarter: 2016Q1

REPORT INFORMATION
  Report Type: Spontaneous
  Country: US (occurrence: US)
  Receive Date: 20160121
  Receipt Date: 20160315
  Transmission Date: 20160526
  Serious: Yes (Other)
  Sender: FDA-Public Use
  Company Number: US-PFIZER INC-2016017227

PATIENT
  Age: 31 Year
  Sex: Female

DRUGS (1)
  1. NAVANE [Suspect]
     Active Substance: THIOTHIXENE
     Indication: SCHIZOPHRENIA
     Dosage: UNK
     Dates: start: 1999, end: 1999

REACTIONS (3)
  - Drug hypersensitivity [Unknown]
  - Seizure [Recovered/Resolved]
  - Tooth fracture [Not Recovered/Not Resolved]

NARRATIVE: CASE EVENT DATE: 1999
